FAERS Safety Report 23669637 (Version 1)
Quarter: 2024Q1

REPORT INFORMATION
  Report Type: Spontaneous
  Country: CN (occurrence: CN)
  Receive Date: 20240325
  Receipt Date: 20240325
  Transmission Date: 20240410
  Serious: Yes (Hospitalization)
  Sender: FDA-Public Use
  Company Number: CN-NAPPMUNDI-GBR-2024-0115233

PATIENT
  Age: 79 Year
  Sex: Male
  Weight: 40 kg

DRUGS (3)
  1. MORPHINE SULFATE [Suspect]
     Active Substance: MORPHINE SULFATE
     Indication: Analgesic therapy
     Dosage: 10 MILLIGRAM, BID
     Route: 048
     Dates: start: 20240220
  2. MORPHINE SULFATE [Suspect]
     Active Substance: MORPHINE SULFATE
     Dosage: 30 MILLIGRAM, BID
     Route: 048
     Dates: start: 20240220
  3. OSELTAMIVIR PHOSPHATE [Suspect]
     Active Substance: OSELTAMIVIR PHOSPHATE
     Indication: Influenza
     Dosage: 75 MILLIGRAM, BID
     Route: 048
     Dates: start: 20240222, end: 20240227

REACTIONS (2)
  - Delirium [Not Recovered/Not Resolved]
  - Influenza [Unknown]

NARRATIVE: CASE EVENT DATE: 20240201
